FAERS Safety Report 6901464-1 (Version None)
Quarter: 2010Q3

REPORT INFORMATION
  Report Type: 
  Country: None (occurrence: None)
  Receive Date: 20100803
  Receipt Date: 20080207
  Transmission Date: 20110219
  Serious: Yes (Other)
  Sender: FDA-Public Use
  Company Number: US-PFIZER INC-2008012226

PATIENT
  Sex: Female

DRUGS (1)
  1. LYRICA [Suspect]

REACTIONS (4)
  - ABDOMINAL DISTENSION [None]
  - OEDEMA PERIPHERAL [None]
  - VISION BLURRED [None]
  - WEIGHT INCREASED [None]
